FAERS Safety Report 5513513-6 (Version None)
Quarter: 2007Q4

REPORT INFORMATION
  Report Type: 
  Country: None (occurrence: None)
  Receive Date: 20071108
  Receipt Date: 20071029
  Transmission Date: 20080405
  Serious: Yes (Hospitalization)
  Sender: FDA-Public Use
  Company Number: 2007-03615

PATIENT
  Age: 62 Year
  Sex: Female

DRUGS (3)
  1. VELCADE [Suspect]
     Indication: MULTIPLE MYELOMA
     Dosage: 2.5 MG, INTRAVENOUS
     Route: 042
     Dates: start: 20070808, end: 20070830
  2. ALKERAN [Concomitant]
  3. ZOLEDRONIC ACID [Concomitant]

REACTIONS (4)
  - ECCHYMOSIS [None]
  - INTESTINAL OBSTRUCTION [None]
  - MUSCULAR WEAKNESS [None]
  - NEUROPATHY PERIPHERAL [None]
